FAERS Safety Report 14014162 (Version 1)
Quarter: 2017Q3

REPORT INFORMATION
  Report Type: Spontaneous
  Country: PE (occurrence: PE)
  Receive Date: 20170927
  Receipt Date: 20170927
  Transmission Date: 20171128
  Serious: Yes (Other)
  Sender: FDA-Public Use
  Company Number: PE-ROCHE-1997338

PATIENT
  Sex: Male

DRUGS (2)
  1. XOLAIR [Suspect]
     Active Substance: OMALIZUMAB
     Indication: PRODUCT USED FOR UNKNOWN INDICATION
     Dosage: 4 DF, IN A SINGLE APPLICATION?150 MG
     Route: 065
  2. XOLAIR [Suspect]
     Active Substance: OMALIZUMAB
     Dosage: 2 DF, EVERY 15 DAYS
     Route: 065

REACTIONS (13)
  - Respiration abnormal [Unknown]
  - Chills [Unknown]
  - Dyspnoea [Unknown]
  - Wrong technique in product usage process [Unknown]
  - Incorrect dose administered [Unknown]
  - Irritability [Unknown]
  - Feeling abnormal [Unknown]
  - Pyrexia [Unknown]
  - Angina pectoris [Unknown]
  - Chest discomfort [Unknown]
  - Fatigue [Unknown]
  - Asthenia [Unknown]
  - Tracheitis [Unknown]
